FAERS Safety Report 22695095 (Version 2)
Quarter: 2023Q4

REPORT INFORMATION
  Report Type: Report from Study
  Country: US (occurrence: US)
  Receive Date: 20230712
  Receipt Date: 20231218
  Transmission Date: 20240110
  Serious: Yes (Hospitalization)
  Sender: FDA-Public Use
  Company Number: US-002147023-NVSC2023US154131

PATIENT
  Age: 69 Year
  Sex: Male
  Weight: 56.689 kg

DRUGS (1)
  1. ENTRESTO [Suspect]
     Active Substance: SACUBITRIL\VALSARTAN
     Indication: Chronic left ventricular failure
     Dosage: 1 DOSAGE FORM, (24/26 MG) BID (BY MOUTH)
     Route: 048
     Dates: start: 20200701

REACTIONS (13)
  - Pulmonary oedema [Unknown]
  - Dyspnoea [Unknown]
  - Aspartate aminotransferase increased [Unknown]
  - Blood sodium decreased [Unknown]
  - Blood chloride decreased [Unknown]
  - Blood cholesterol increased [Unknown]
  - Aspartate aminotransferase decreased [Unknown]
  - Alanine aminotransferase decreased [Unknown]
  - Blood urea increased [Unknown]
  - Blood creatinine increased [Unknown]
  - Blood glucose increased [Unknown]
  - N-terminal prohormone brain natriuretic peptide increased [Unknown]
  - Product use issue [Unknown]

NARRATIVE: CASE EVENT DATE: 20201117
